FAERS Safety Report 7000754-4 (Version None)
Quarter: 2010Q3

REPORT INFORMATION
  Report Type: 
  Country: None (occurrence: None)
  Receive Date: 20100920
  Receipt Date: 20100217
  Transmission Date: 20110219
  Serious: Yes (Hospitalization)
  Sender: FDA-Public Use
  Company Number: US-ASTRAZENECA-2008UW27423

PATIENT
  Age: 598 Month
  Sex: Female
  Weight: 90.7 kg

DRUGS (9)
  1. SEROQUEL [Suspect]
     Indication: DEPRESSION
     Route: 048
     Dates: start: 20010501, end: 20031201
  2. SEROQUEL [Suspect]
     Indication: ANXIETY
     Route: 048
     Dates: start: 20010501, end: 20031201
  3. SEROQUEL [Suspect]
     Route: 048
     Dates: start: 20020510
  4. SEROQUEL [Suspect]
     Route: 048
     Dates: start: 20020510
  5. ABILIFY [Concomitant]
  6. GEODON [Concomitant]
  7. ZYPREXA [Concomitant]
  8. SERZONE [Concomitant]
     Route: 048
     Dates: start: 20020510
  9. ZOLOFT [Concomitant]
     Route: 048
     Dates: start: 20020723

REACTIONS (2)
  - DEPRESSION [None]
  - DIABETES MELLITUS [None]
